FAERS Safety Report 23642024 (Version 1)
Quarter: 2024Q1

REPORT INFORMATION
  Report Type: Other
  Country: BG (occurrence: None)
  Receive Date: 20240318
  Receipt Date: 20240318
  Transmission Date: 20240410
  Serious: Yes (Death)
  Sender: FDA-Public Use
  Company Number: BG-ROCHE-3526064

PATIENT
  Age: 54 Year
  Sex: Female
  Weight: 54 kg

DRUGS (12)
  1. XELODA [Suspect]
     Active Substance: CAPECITABINE
     Indication: HER2 positive breast cancer
     Dosage: Q3W - EVERY 3 WEEKS
     Route: 048
     Dates: start: 20190530, end: 20191125
  2. PERJETA [Suspect]
     Active Substance: PERTUZUMAB
     Indication: HER2 positive breast cancer
     Dosage: FREQUENCY: O.D. - ONCE DAILY MOST RECENT DOSE PRIOR TO THE EVENT: 20190404
     Route: 042
     Dates: start: 20170804, end: 20170804
  3. HERCEPTIN [Suspect]
     Active Substance: TRASTUZUMAB
     Indication: HER2 positive breast cancer
     Dosage: FREQUENCY: O.D. - ONCE DAILY MOST RECENT DOSE PRIOR TO THE EVENT: 20200218
     Route: 041
     Dates: start: 20170804, end: 20170804
  4. KADCYLA [Suspect]
     Active Substance: ADO-TRASTUZUMAB EMTANSINE
     Indication: HER2 positive breast cancer
     Dosage: Q3W - EVERY 3 WEEKS
     Route: 042
     Dates: start: 20180830, end: 201811
  5. TAXOTERE [Suspect]
     Active Substance: DOCETAXEL
     Indication: HER2 positive breast cancer
     Dosage: FREQUENCY: Q3W - EVERY 3 WEEKS MOST RECENT DOSE PRIOR TO THE EVENT: 20181219
     Route: 042
     Dates: start: 20170804, end: 201711
  6. GOSERELIN [Suspect]
     Active Substance: GOSERELIN
     Indication: HER2 positive breast cancer
     Dosage: Q4W - EVERY 4 WEEKS
     Route: 058
     Dates: start: 201610, end: 201706
  7. NOLVADEX [Suspect]
     Active Substance: TAMOXIFEN CITRATE
     Indication: HER2 positive breast cancer
     Dosage: O.D. - ONCE DAILY
     Route: 048
     Dates: start: 201610, end: 201706
  8. TYKERB [Suspect]
     Active Substance: LAPATINIB DITOSYLATE
     Indication: HER2 positive breast cancer
     Dosage: O.D. - ONCE DAILY
     Route: 048
     Dates: start: 20191125, end: 20191125
  9. NAVELBINE [Suspect]
     Active Substance: VINORELBINE TARTRATE
     Indication: HER2 positive breast cancer
     Dosage: Q3W - EVERY 3 WEEKS
     Route: 042
     Dates: start: 20200218, end: 20201009
  10. XGEVA [Concomitant]
     Active Substance: DENOSUMAB
     Dosage: ONGOING = NOT CHECKED
     Dates: start: 20180815, end: 20201009
  11. MORPHINE [Concomitant]
     Active Substance: MORPHINE
     Indication: Pelvic pain
     Dosage: ONGOING = NOT CHECKED
     Dates: start: 20200601, end: 20201009
  12. FENTANYL CITRATE [Concomitant]
     Active Substance: FENTANYL CITRATE
     Indication: Pelvic pain
     Dosage: ONGOING = NOT CHECKED
     Dates: start: 20200601, end: 20201009

REACTIONS (1)
  - Death [Fatal]

NARRATIVE: CASE EVENT DATE: 20201009
